FAERS Safety Report 5692703-6 (Version None)
Quarter: 2008Q2

REPORT INFORMATION
  Report Type: 
  Country: None (occurrence: None)
  Receive Date: 20080401
  Receipt Date: 20080319
  Transmission Date: 20081010
  Serious: Yes (Hospitalization)
  Sender: FDA-Public Use
  Company Number: 100#08#2008-01664

PATIENT
  Age: 15 Month
  Sex: Male

DRUGS (6)
  1. ACETAMINOPHEN [Suspect]
     Indication: PYREXIA
     Dosage: 240 MG FOUR TIMES DAILY (73 MG/KG), ORAL
     Route: 048
  2. TOPIRAMATE [Suspect]
     Indication: MYOCLONIC EPILEPSY
     Dosage: 6 MG/KG; 3.9 MG/KG;
  3. VALPROIC ACID [Suspect]
     Indication: MYOCLONIC EPILEPSY
     Dosage: 31 MG/KG; 26 MG/KG
  4. CARBAMAZEPINE [Suspect]
     Indication: GRAND MAL CONVULSION
  5. CARBAMAZEPINE [Suspect]
     Indication: PARTIAL SEIZURES
  6. CLOBAZAM (CLOBAZAM) [Concomitant]

REACTIONS (13)
  - ACTIVATED PARTIAL THROMBOPLASTIN TIME PROLONGED [None]
  - ALANINE AMINOTRANSFERASE INCREASED [None]
  - ASPARTATE AMINOTRANSFERASE INCREASED [None]
  - COAGULATION TIME PROLONGED [None]
  - CONDITION AGGRAVATED [None]
  - CONVULSION [None]
  - DRUG INTERACTION [None]
  - INFLUENZA [None]
  - INTERNATIONAL NORMALISED RATIO INCREASED [None]
  - LIVER INJURY [None]
  - MYOCLONIC EPILEPSY [None]
  - PROTHROMBIN TIME PROLONGED [None]
  - STATUS EPILEPTICUS [None]
